FAERS Safety Report 9342896 (Version 2)
Quarter: 2013Q3

REPORT INFORMATION
  Report Type: Spontaneous
  Country: OM (occurrence: OM)
  Receive Date: 20130611
  Receipt Date: 20130725
  Transmission Date: 20140515
  Serious: Yes (Other)
  Sender: FDA-Public Use
  Company Number: OM-GLAXOSMITHKLINE-B0898491A

PATIENT
  Sex: Female

DRUGS (1)
  1. SERETIDE [Suspect]
     Indication: ASTHMA
     Route: 065
     Dates: start: 2005

REACTIONS (12)
  - Cushing^s syndrome [Not Recovered/Not Resolved]
  - Adrenal insufficiency [Not Recovered/Not Resolved]
  - Abasia [Unknown]
  - Suicidal ideation [Unknown]
  - Dysstasia [Not Recovered/Not Resolved]
  - Malaise [Unknown]
  - Muscle atrophy [Unknown]
  - Asthenia [Unknown]
  - Fatigue [Unknown]
  - Impaired driving ability [Unknown]
  - Performance status decreased [Unknown]
  - Feeling abnormal [Unknown]
